FAERS Safety Report 9428621 (Version 2)
Quarter: 2014Q1

REPORT INFORMATION
  Report Type: Spontaneous
  Country: GB (occurrence: GB)
  Receive Date: 20130730
  Receipt Date: 20140123
  Transmission Date: 20141002
  Serious: Yes (Hospitalization, Other)
  Sender: FDA-Public Use
  Company Number: GB-SANOFI-AVENTIS-2013SA074884

PATIENT
  Age: 69 Year
  Sex: Female
  Weight: 51 kg

DRUGS (9)
  1. CLOPIDOGREL BISULFATE [Suspect]
     Indication: TRANSIENT ISCHAEMIC ATTACK
     Dosage: 75 MG
     Route: 048
     Dates: start: 20130711, end: 20130712
  2. OTOMIZE [Suspect]
     Indication: EAR PAIN
     Route: 065
     Dates: start: 20130630, end: 20130701
  3. OTOMIZE [Suspect]
     Indication: EAR PRURITUS
     Route: 065
     Dates: start: 20130630, end: 20130701
  4. MULTIVITAMINS [Concomitant]
  5. VITAMIN D [Concomitant]
  6. OMEGA-3 [Concomitant]
  7. HYALURONIC ACID [Concomitant]
  8. SIMVASTATIN [Concomitant]
     Indication: TRANSIENT ISCHAEMIC ATTACK
     Dosage: 40 MG
     Dates: start: 20130710
  9. ASPIRIN [Concomitant]

REACTIONS (5)
  - Transient ischaemic attack [Unknown]
  - Off label use [Unknown]
  - Drug ineffective [Unknown]
  - Feeling abnormal [Recovered/Resolved]
  - Dizziness [Recovered/Resolved]
